FAERS Safety Report 4329187-6 (Version None)
Quarter: 2004Q1

REPORT INFORMATION
  Report Type: 
  Country: None (occurrence: None)
  Receive Date: 20040329
  Receipt Date: 20031229
  Transmission Date: 20041129
  Serious: No
  Sender: FDA-Public Use
  Company Number: 03P-163-0245795-00

PATIENT
  Age: 63 Year
  Sex: Female
  Weight: 56.6996 kg

DRUGS (14)
  1. HUMIRA [Suspect]
     Indication: RHEUMATOID ARTHRITIS
     Dosage: 40 MG, 1IN 2 WK, SUBCUTANEOUS
     Route: 058
     Dates: start: 20031023
  2. LEVOTHYROXINE SODIUM [Concomitant]
  3. METHOTREXATE SODIUM [Concomitant]
  4. PREDNISONE [Concomitant]
  5. ATORVASTATIN [Concomitant]
  6. LORATADINE [Concomitant]
  7. FOLIC ACID [Concomitant]
  8. ERGOCALCIFEROL [Concomitant]
  9. MULTIVITAMIN [Concomitant]
  10. OSCAL W/D [Concomitant]
  11. ASPIRIN [Concomitant]
  12. TOCOPHEROL CONCENTRATE CAP [Concomitant]
  13. FERROUS SULFATE TAB [Concomitant]
  14. RANITIDINE HYDROCHLORIDE [Concomitant]

REACTIONS (2)
  - INJECTION SITE ERYTHEMA [None]
  - INJECTION SITE HAEMORRHAGE [None]
